FAERS Safety Report 8457046-6 (Version None)
Quarter: 2012Q2

REPORT INFORMATION
  Report Type: 
  Country: None (occurrence: None)
  Receive Date: 20120621
  Receipt Date: 20120608
  Transmission Date: 20120825
  Serious: Yes (Other)
  Sender: FDA-Public Use
  Company Number: GB-MYLANLABS-2012S1011752

PATIENT
  Age: 57 Year
  Sex: Male
  Weight: 85 kg

DRUGS (4)
  1. VENLAFAXINE HCL [Suspect]
     Dates: start: 20120529
  2. ZOPICLONE [Concomitant]
     Indication: PRODUCT USED FOR UNKNOWN INDICATION
     Dates: start: 20120430, end: 20120528
  3. TIMODINE /00446501/ [Concomitant]
     Indication: PRODUCT USED FOR UNKNOWN INDICATION
     Dates: start: 20120508, end: 20120509
  4. VENLAFAXINE HCL [Suspect]
     Indication: PRODUCT USED FOR UNKNOWN INDICATION
     Dates: start: 20120326, end: 20120423

REACTIONS (2)
  - TINNITUS [None]
  - AFFECTIVE DISORDER [None]
